FAERS Safety Report 5315499-6 (Version None)
Quarter: 2007Q2

REPORT INFORMATION
  Report Type: 
  Country: None (occurrence: None)
  Receive Date: 20070503
  Receipt Date: 20070423
  Transmission Date: 20071010
  Serious: Yes (Hospitalization)
  Sender: FDA-Public Use
  Company Number: NO-BAXTER-2007BH003854

PATIENT
  Age: 60 Year
  Sex: Female

DRUGS (3)
  1. EXTRANEAL [Suspect]
     Indication: RENAL FAILURE CHRONIC
     Route: 033
     Dates: start: 20040621
  2. PHYSIOSOL IN PLASTIC CONTAINER [Suspect]
     Indication: RENAL FAILURE CHRONIC
     Route: 033
     Dates: start: 20040621
  3. NUTRINEAL [Suspect]
     Indication: RENAL FAILURE CHRONIC
     Route: 033
     Dates: start: 20040621

REACTIONS (3)
  - ABDOMINAL PAIN [None]
  - ILL-DEFINED DISORDER [None]
  - PYREXIA [None]
